FAERS Safety Report 18312207 (Version 2)
Quarter: 2020Q4

REPORT INFORMATION
  Report Type: Spontaneous
  Country: PT (occurrence: PT)
  Receive Date: 20200925
  Receipt Date: 20201012
  Transmission Date: 20210113
  Serious: Yes (Other)
  Sender: FDA-Public Use
  Company Number: PT-PFIZER INC-2020368426

PATIENT
  Age: 79 Year
  Sex: Female

DRUGS (2)
  1. PREDNISOLONE. [Concomitant]
     Active Substance: PREDNISOLONE
     Dosage: UP TO 1.5 MG/KG, DAILY
  2. RITUXIMAB. [Suspect]
     Active Substance: RITUXIMAB
     Dosage: 375 MG/M2

REACTIONS (3)
  - Kaposi^s sarcoma [Recovered/Resolved]
  - Haemolysis [Unknown]
  - Disease recurrence [Unknown]
